FAERS Safety Report 24316737 (Version 3)
Quarter: 2024Q4

REPORT INFORMATION
  Report Type: Spontaneous
  Country: US (occurrence: US)
  Receive Date: 20240913
  Receipt Date: 20241010
  Transmission Date: 20250115
  Serious: Yes (Hospitalization)
  Sender: BRISTOL MYERS SQUIBB
  Company Number: US-BRISTOL-MYERS SQUIBB COMPANY-2024-145682

PATIENT
  Age: 70 Year
  Sex: Male
  Weight: 72.57 kg

DRUGS (2)
  1. POMALYST [Suspect]
     Active Substance: POMALIDOMIDE
     Indication: Plasma cell myeloma
     Dosage: ONCE DAILY FOR 21 DAYS ON THEN 7 DAYS OFF
     Route: 048
     Dates: start: 202408
  2. POMALYST [Suspect]
     Active Substance: POMALIDOMIDE
     Dosage: ONCE DAILY FOR 21 DAYS ON THEN 7 DAYS OFF
     Route: 048

REACTIONS (2)
  - Asthenia [Not Recovered/Not Resolved]
  - Bedridden [Unknown]
